FAERS Safety Report 13734515 (Version 2)
Quarter: 2017Q3

REPORT INFORMATION
  Report Type: Spontaneous
  Country: JP (occurrence: JP)
  Receive Date: 20170709
  Receipt Date: 20170712
  Transmission Date: 20171127
  Serious: Yes (Hospitalization, Other)
  Sender: FDA-Public Use
  Company Number: JP-009507513-1706JPN011560

PATIENT
  Age: 78 Year
  Sex: Male

DRUGS (38)
  1. GLACTIV [Suspect]
     Active Substance: SITAGLIPTIN
     Indication: TYPE 2 DIABETES MELLITUS
     Dosage: 25 MG, ONCE A DAY (STRENGTH: 12.5MG, 25 MG, 50MG, 100MG)
     Route: 048
     Dates: end: 20170605
  2. OPDIVO [Suspect]
     Active Substance: NIVOLUMAB
     Dosage: 3 MG/KG/DAY, CYCLICAL (3RD CYCLE)
     Route: 041
     Dates: start: 20160927, end: 20160927
  3. OPDIVO [Suspect]
     Active Substance: NIVOLUMAB
     Dosage: 3 MG/KG/DAY, CYCLICAL (8TH CYCLE)
     Route: 041
     Dates: start: 20161213, end: 20161213
  4. RABEPRAZOLE SODIUM. [Concomitant]
     Active Substance: RABEPRAZOLE SODIUM
     Dosage: UNK
  5. VALSARTAN. [Concomitant]
     Active Substance: VALSARTAN
     Dosage: UNK
  6. NOVOLIN N [Concomitant]
     Active Substance: INSULIN HUMAN
     Dosage: UNK
     Dates: start: 20170411, end: 20170418
  7. PREDONINE [Concomitant]
     Active Substance: PREDNISOLONE
     Dosage: 10 MG/DAY
     Dates: start: 20170426, end: 20170429
  8. OPDIVO [Suspect]
     Active Substance: NIVOLUMAB
     Dosage: 3 MG/KG/DAY, CYCLICAL (2ND CYCLE)
     Route: 041
     Dates: start: 20160908, end: 20160908
  9. CRAVIT [Concomitant]
     Active Substance: LEVOFLOXACIN
     Dosage: UNK
     Dates: start: 20170322, end: 20170327
  10. OPDIVO [Suspect]
     Active Substance: NIVOLUMAB
     Dosage: 3 MG/KG/DAY, CYCLICAL (7TH CYCLE)
     Route: 041
     Dates: start: 20161129, end: 20161129
  11. OPDIVO [Suspect]
     Active Substance: NIVOLUMAB
     Dosage: 3 MG/KG/DAY, CYCLICAL (11TH CYCLE)
     Route: 041
     Dates: start: 20170125, end: 20170125
  12. RIVOTRIL [Concomitant]
     Active Substance: CLONAZEPAM
     Dosage: UNK
     Dates: start: 20160727
  13. NOVORAPID [Concomitant]
     Active Substance: INSULIN ASPART
     Dosage: UNK
     Dates: start: 20170411, end: 20170418
  14. NOVORAPID [Concomitant]
     Active Substance: INSULIN ASPART
     Dosage: UNK
     Dates: start: 20170419
  15. ITRIZOLE [Concomitant]
     Active Substance: ITRACONAZOLE
     Dosage: UNK
     Dates: start: 20170502, end: 20170605
  16. OPDIVO [Suspect]
     Active Substance: NIVOLUMAB
     Dosage: 3 MG/KG/DAY, CYCLICAL (4TH CYCLE)
     Route: 041
     Dates: start: 20161012, end: 20161012
  17. OPDIVO [Suspect]
     Active Substance: NIVOLUMAB
     Dosage: 3 MG/KG/DAY, CYCLICAL (5TH CYCLE)
     Route: 041
     Dates: start: 20161101, end: 20161101
  18. OPDIVO [Suspect]
     Active Substance: NIVOLUMAB
     Dosage: 3 MG/KG/DAY, CYCLICAL (6TH CYCLE)
     Route: 041
     Dates: start: 20161115, end: 20161115
  19. NOVOLIN N [Concomitant]
     Active Substance: INSULIN HUMAN
     Dosage: UNK
     Dates: start: 20170419
  20. OPDIVO [Suspect]
     Active Substance: NIVOLUMAB
     Dosage: 3 MG/KG/DAY, CYCLICAL (10TH CYCLE)
     Route: 041
     Dates: start: 20170111, end: 20170111
  21. OPDIVO [Suspect]
     Active Substance: NIVOLUMAB
     Dosage: 3 MG/KG/DAY, CYCLICAL (12TH CYCLE)
     Route: 041
     Dates: start: 20170208, end: 20170208
  22. OPDIVO [Suspect]
     Active Substance: NIVOLUMAB
     Dosage: 3 MG/KG/DAY, CYCLICAL (13TH CYCLE)
     Route: 041
     Dates: start: 20170222, end: 20170222
  23. DOCETAXEL. [Concomitant]
     Active Substance: DOCETAXEL
     Dosage: UNK
     Dates: start: 20160726, end: 20160726
  24. GLIMEPIRIDE. [Concomitant]
     Active Substance: GLIMEPIRIDE
     Dosage: UNK
     Dates: end: 20170605
  25. AMLODIPINE BESYLATE. [Concomitant]
     Active Substance: AMLODIPINE BESYLATE
     Dosage: UNK
  26. NOVORAPID [Concomitant]
     Active Substance: INSULIN ASPART
     Dosage: UNK
     Dates: end: 20170404
  27. PREDONINE [Concomitant]
     Active Substance: PREDNISOLONE
     Dosage: 15 MG/DAY
     Dates: start: 20170422, end: 20170425
  28. VFEND [Suspect]
     Active Substance: VORICONAZOLE
     Dosage: 0.5 TX 2 TIMES/DAY
     Route: 048
     Dates: start: 20170425, end: 20170502
  29. PREDONINE [Concomitant]
     Active Substance: PREDNISOLONE
     Indication: ORGANISING PNEUMONIA
     Dosage: 20 MG/DAY
     Dates: start: 20170412, end: 20170421
  30. PREDONINE [Concomitant]
     Active Substance: PREDNISOLONE
     Dosage: 5 MG/DAY
     Dates: start: 20170430, end: 20170503
  31. OPDIVO [Suspect]
     Active Substance: NIVOLUMAB
     Indication: SQUAMOUS CELL CARCINOMA
     Dosage: 3 MG/KG, CYCLICAL (1ST CYCLE)(STRENGTH 20 MG, 100MG)
     Route: 041
     Dates: start: 20160825, end: 20160825
  32. OPDIVO [Suspect]
     Active Substance: NIVOLUMAB
     Dosage: 3 MG/KG/DAY, CYCLICAL (14TH CYCLE)
     Route: 041
     Dates: start: 20170308, end: 20170308
  33. VFEND [Suspect]
     Active Substance: VORICONAZOLE
     Indication: BRONCHOPULMONARY ASPERGILLOSIS
     Dosage: 1.5 TX 2 TIMES/DAY
     Route: 048
     Dates: start: 20170418, end: 20170424
  34. DERMOVATE [Concomitant]
     Active Substance: CLOBETASOL
     Dosage: UNK
     Dates: start: 20170502, end: 20170516
  35. FEXOFENADINE HYDROCHLORIDE. [Concomitant]
     Active Substance: FEXOFENADINE HYDROCHLORIDE
     Dosage: UNK
     Dates: start: 20170502, end: 20170516
  36. OPDIVO [Suspect]
     Active Substance: NIVOLUMAB
     Dosage: 3 MG/KG/DAY, CYCLICAL (9TH CYCLE)
     Route: 041
     Dates: start: 20161227, end: 20161227
  37. OPDIVO [Suspect]
     Active Substance: NIVOLUMAB
     Dosage: 3 MG/KG/DAY, CYCLICAL (15TH CYCLE)
     Route: 041
     Dates: start: 20170322, end: 20170322
  38. NOVOLIN N [Concomitant]
     Active Substance: INSULIN HUMAN
     Dosage: UNK
     Dates: start: 20170405, end: 20170410

REACTIONS (5)
  - Organising pneumonia [Recovered/Resolved]
  - Drug eruption [Recovered/Resolved]
  - Type 1 diabetes mellitus [Recovered/Resolved]
  - Cerebral infarction [Recovered/Resolved]
  - Bronchopulmonary aspergillosis [Recovered/Resolved]

NARRATIVE: CASE EVENT DATE: 20161013
